APPROVED DRUG PRODUCT: QUINIDINE SULFATE
Active Ingredient: QUINIDINE SULFATE
Strength: 200MG
Dosage Form/Route: TABLET;ORAL
Application: A081030 | Product #001
Applicant: SUN PHARMACEUTICAL INDUSTRIES INC
Approved: Apr 14, 1989 | RLD: No | RS: No | Type: DISCN